FAERS Safety Report 4450274-6 (Version None)
Quarter: 2004Q3

REPORT INFORMATION
  Report Type: 
  Country: None (occurrence: None)
  Receive Date: 20040914
  Receipt Date: 20040831
  Transmission Date: 20050211
  Serious: Yes (Hospitalization)
  Sender: FDA-Public Use
  Company Number: 2004051623

PATIENT
  Age: 49 Year
  Sex: Female

DRUGS (2)
  1. ZITHROMAX [Suspect]
     Indication: PNEUMONIA
     Dosage: 500 MG (1 D), ORAL
     Route: 048
     Dates: start: 20040629, end: 20040630
  2. FUROSEMIDE [Concomitant]

REACTIONS (2)
  - DRUG EFFECT DECREASED [None]
  - PHOTOSENSITIVITY REACTION [None]
